FAERS Safety Report 12135804 (Version 2)
Quarter: 2016Q1

REPORT INFORMATION
  Report Type: Spontaneous
  Country: US (occurrence: US)
  Receive Date: 20160302
  Receipt Date: 20160322
  Transmission Date: 20160526
  Serious: Yes (Hospitalization)
  Sender: FDA-Public Use
  Company Number: US-BEH-2016059239

PATIENT
  Age: 76 Year
  Sex: Female
  Weight: 83 kg

DRUGS (24)
  1. VITAMIN D [Concomitant]
     Active Substance: CHOLECALCIFEROL
  2. STERILE SALINE [Concomitant]
  3. RANITIDINE [Concomitant]
     Active Substance: RANITIDINE\RANITIDINE HYDROCHLORIDE
  4. DIPHENHYDRAMINE. [Concomitant]
     Active Substance: DIPHENHYDRAMINE
  5. CITALOPRAM [Concomitant]
     Active Substance: CITALOPRAM HYDROBROMIDE
  6. FLUNISOLIDE. [Concomitant]
     Active Substance: FLUNISOLIDE
  7. ZEMAIRA [Suspect]
     Active Substance: .ALPHA.1-PROTEINASE INHIBITOR HUMAN
     Indication: COMPLEMENT FACTOR ABNORMAL
     Dosage: 971 MG VIAL
     Route: 042
     Dates: start: 20141111
  8. CALCIUM [Concomitant]
     Active Substance: CALCIUM
  9. HYDROCODONE [Concomitant]
     Active Substance: HYDROCODONE
  10. FORADIL [Concomitant]
     Active Substance: FORMOTEROL FUMARATE
  11. LISINOPRIL. [Concomitant]
     Active Substance: LISINOPRIL
  12. SERTRALINE [Concomitant]
     Active Substance: SERTRALINE HYDROCHLORIDE
  13. ZEMAIRA [Suspect]
     Active Substance: .ALPHA.1-PROTEINASE INHIBITOR HUMAN
     Indication: IMMUNODEFICIENCY COMMON VARIABLE
     Dosage: 971 MG VIAL
     Route: 042
     Dates: start: 20141111
  14. ASMANEX [Concomitant]
     Active Substance: MOMETASONE FUROATE
  15. OMEPRAZOLE. [Concomitant]
     Active Substance: OMEPRAZOLE
  16. PREDNISONE. [Concomitant]
     Active Substance: PREDNISONE
  17. DOXYCYCLINE. [Concomitant]
     Active Substance: DOXYCYCLINE
  18. TYLENOL [Concomitant]
     Active Substance: ACETAMINOPHEN
  19. AMOXICILLIN. [Concomitant]
     Active Substance: AMOXICILLIN
  20. ONDANSETRON [Concomitant]
     Active Substance: ONDANSETRON
  21. SODIUM CHLORIDE. [Concomitant]
     Active Substance: SODIUM CHLORIDE
  22. EPIPEN [Concomitant]
     Active Substance: EPINEPHRINE
  23. CLONAZEPAM. [Concomitant]
     Active Substance: CLONAZEPAM
  24. ASPIRIN. [Concomitant]
     Active Substance: ASPIRIN

REACTIONS (1)
  - Chest pain [Unknown]

NARRATIVE: CASE EVENT DATE: 20160204
